FAERS Safety Report 6057409-2 (Version None)
Quarter: 2009Q1

REPORT INFORMATION
  Report Type: 
  Country: None (occurrence: None)
  Receive Date: 20090129
  Receipt Date: 20090126
  Transmission Date: 20090719
  Serious: Yes (Other)
  Sender: FDA-Public Use
  Company Number: US-BAYER-200910248BCC

PATIENT
  Age: 73 Year
  Sex: Female
  Weight: 82 kg

DRUGS (3)
  1. ALEVE (CAPLET) [Suspect]
     Indication: ARTHRALGIA
     Dosage: TOTAL DAILY DOSE: 440 MG  UNIT DOSE: 220 MG
     Route: 048
     Dates: start: 19990101
  2. TOPROL-XL [Concomitant]
  3. INSULIN [Concomitant]

REACTIONS (1)
  - RECTAL HAEMORRHAGE [None]
